FAERS Safety Report 19841845 (Version 2)
Quarter: 2021Q4

REPORT INFORMATION
  Report Type: Report from Study
  Country: AR (occurrence: AR)
  Receive Date: 20210915
  Receipt Date: 20211030
  Transmission Date: 20220303
  Serious: Yes (Hospitalization, Other)
  Sender: FDA-Public Use
  Company Number: AR-NOVARTISPH-NVSC2021AR206467

PATIENT
  Sex: Female

DRUGS (7)
  1. HYDROCHLOROTHIAZIDE\VALSARTAN [Suspect]
     Active Substance: HYDROCHLOROTHIAZIDE\VALSARTAN
     Indication: Hypertension
     Dosage: 160 MG, QD (STARTED BEFORE 2010)
     Route: 065
     Dates: end: 2019
  2. EXFORGE [Suspect]
     Active Substance: AMLODIPINE BESYLATE\VALSARTAN
     Indication: Hypertension
     Dosage: 1 DF, QD
     Route: 065
  3. LANSOPRAZOLE [Concomitant]
     Active Substance: LANSOPRAZOLE
     Indication: Product used for unknown indication
     Dosage: UNK
     Route: 065
  4. FACTOR AG [Concomitant]
     Indication: Product used for unknown indication
     Dosage: UNK
     Route: 065
  5. EMETIL [Concomitant]
     Indication: Product used for unknown indication
     Route: 065
  6. NEBIVOLOL [Concomitant]
     Active Substance: NEBIVOLOL
     Indication: Product used for unknown indication
     Dosage: UNK
     Route: 065
     Dates: start: 202007
  7. NOSTER [Concomitant]
     Indication: Hypertension
     Dosage: UNK
     Route: 065
     Dates: start: 201907

REACTIONS (16)
  - Blood pressure increased [Recovering/Resolving]
  - Malaise [Recovering/Resolving]
  - Cardiac failure [Recovering/Resolving]
  - Blood sodium decreased [Recovering/Resolving]
  - Blood potassium decreased [Recovering/Resolving]
  - Nausea [Unknown]
  - Vomiting [Recovering/Resolving]
  - Feeling abnormal [Unknown]
  - Nephrolithiasis [Recovering/Resolving]
  - Abdominal pain [Unknown]
  - Myocardial infarction [Unknown]
  - Peripheral swelling [Unknown]
  - Memory impairment [Unknown]
  - Cholelithiasis [Recovering/Resolving]
  - Headache [Unknown]
  - Drug ineffective [Unknown]

NARRATIVE: CASE EVENT DATE: 20190101
